FAERS Safety Report 8064403-9 (Version None)
Quarter: 2012Q1

REPORT INFORMATION
  Report Type: 
  Country: None (occurrence: None)
  Receive Date: 20120123
  Receipt Date: 20120121
  Transmission Date: 20120608
  Serious: No
  Sender: FDA-Public Use
  Company Number: US-PFIZER INC-2012017516

PATIENT
  Sex: Male
  Weight: 118 kg

DRUGS (6)
  1. IBUPROFEN (ADVIL) [Concomitant]
     Indication: HYPERTENSION
     Dosage: UNK
  2. MAXZIDE [Concomitant]
     Indication: HYPERTENSION
     Dosage: 75/50 MG, 1X/DAY
  3. ATENOLOL [Concomitant]
     Indication: HYPERTENSION
     Dosage: 50 MG, UNK
  4. ENALAPRIL [Concomitant]
     Indication: HYPERTENSION
     Dosage: 10 MG, UNK
  5. CHANTIX [Suspect]
     Indication: SMOKING CESSATION THERAPY
     Dosage: 0.5 MG, 1X/DAY
     Route: 048
     Dates: start: 20120116, end: 20120101
  6. CHANTIX [Suspect]
     Dosage: 0.5 MG, 2X/DAY
     Route: 048
     Dates: start: 20120101

REACTIONS (2)
  - VISION BLURRED [None]
  - DIZZINESS [None]
